FAERS Safety Report 13628509 (Version 3)
Quarter: 2017Q3

REPORT INFORMATION
  Report Type: Spontaneous
  Country: US (occurrence: US)
  Receive Date: 20170608
  Receipt Date: 20170705
  Transmission Date: 20171127
  Serious: Yes (Other)
  Sender: FDA-Public Use
  Company Number: US-PFIZER INC-2017248723

PATIENT
  Age: 74 Year
  Sex: Female
  Weight: 60.77 kg

DRUGS (1)
  1. IBRANCE [Suspect]
     Active Substance: PALBOCICLIB
     Indication: BREAST CANCER METASTATIC
     Dosage: 125 MG, CYCLIC (DAILY; D1- 21; Q28 DAYS)
     Route: 048
     Dates: start: 20170522

REACTIONS (4)
  - Vomiting [Recovered/Resolved with Sequelae]
  - Pulmonary oedema [Recovered/Resolved with Sequelae]
  - Dizziness [Unknown]
  - Dyspnoea exertional [Recovered/Resolved with Sequelae]
